FAERS Safety Report 12083313 (Version 1)
Quarter: 2016Q1

REPORT INFORMATION
  Report Type: Spontaneous
  Country: US (occurrence: None)
  Receive Date: 20160216
  Receipt Date: 20160216
  Transmission Date: 20160526
  Serious: No
  Sender: FDA-Public Use
  Company Number: None

PATIENT
  Age: 66 Year
  Sex: Female
  Weight: 74.84 kg

DRUGS (11)
  1. OMEPRAZOLE. [Concomitant]
     Active Substance: OMEPRAZOLE
  2. ASPIRIN. [Concomitant]
     Active Substance: ASPIRIN
  3. MULTIVITAMIN [Concomitant]
     Active Substance: VITAMINS
  4. ALENDRONATE [Concomitant]
     Active Substance: ALENDRONATE SODIUM
  5. RED YEAST RICE [Concomitant]
     Active Substance: DIETARY SUPPLEMENT
  6. FLUTICASONE [Suspect]
     Active Substance: FLUTICASONE\FLUTICASONE PROPIONATE
     Indication: SINUS DISORDER
     Dosage: 2 SPRAYYS PER NOSTRIL, TWICE DAILY, INHALATION
     Route: 055
     Dates: start: 20160212, end: 20160214
  7. EZETIMBE [Concomitant]
     Active Substance: EZETIMIBE
  8. CALCIUM [Concomitant]
     Active Substance: CALCIUM
  9. VITAMIN D [Concomitant]
     Active Substance: CHOLECALCIFEROL
  10. OMEGA 3 MARINE OIL (RESQ) [Concomitant]
  11. FLUTICASONE [Suspect]
     Active Substance: FLUTICASONE\FLUTICASONE PROPIONATE
     Indication: SWELLING
     Dosage: 2 SPRAYYS PER NOSTRIL, TWICE DAILY, INHALATION
     Route: 055
     Dates: start: 20160212, end: 20160214

REACTIONS (5)
  - Headache [None]
  - Nausea [None]
  - Photophobia [None]
  - Visual impairment [None]
  - Chills [None]

NARRATIVE: CASE EVENT DATE: 20160214
